FAERS Safety Report 7981106-7 (Version None)
Quarter: 2011Q4

REPORT INFORMATION
  Report Type: 
  Country: None (occurrence: None)
  Receive Date: 20111212
  Receipt Date: 20111201
  Transmission Date: 20120403
  Serious: Yes (Other)
  Sender: FDA-Public Use
  Company Number: 201111063

PATIENT
  Age: 86 Year
  Sex: Male

DRUGS (1)
  1. XIAFLEX [Suspect]
     Indication: DUPUYTREN'S CONTRACTURE
     Dosage: 1 IN 1 D, INTRALESIONAL
     Route: 026
     Dates: start: 20111107, end: 20111107

REACTIONS (3)
  - LOSS OF CONSCIOUSNESS [None]
  - PRESYNCOPE [None]
  - DIZZINESS [None]
